FAERS Safety Report 20297619 (Version 2)
Quarter: 2023Q1

REPORT INFORMATION
  Report Type: Spontaneous
  Country: US (occurrence: None)
  Receive Date: 20220105
  Receipt Date: 20230108
  Transmission Date: 20230417
  Serious: No
  Sender: FDA-Public Use
  Company Number: US-ROCHE-2811195

PATIENT
  Age: 5 Year
  Sex: Male

DRUGS (3)
  1. HEMLIBRA [Suspect]
     Active Substance: EMICIZUMAB-KXWH
     Indication: Factor VIII deficiency
     Dosage: STRENGTH: 60 MG/0.4ML
     Route: 058
     Dates: start: 20190820
  2. HEMLIBRA [Suspect]
     Active Substance: EMICIZUMAB-KXWH
     Indication: Haemophilia
     Dosage: STRENGTH: 60 MG/0.4ML
     Route: 058
     Dates: start: 20211026
  3. HEMLIBRA [Suspect]
     Active Substance: EMICIZUMAB-KXWH
     Route: 058
     Dates: start: 20211201

REACTIONS (3)
  - Head injury [Unknown]
  - Tooth loss [Unknown]
  - Fall [Unknown]

NARRATIVE: CASE EVENT DATE: 20210310
